FAERS Safety Report 7526644-6 (Version None)
Quarter: 2011Q2

REPORT INFORMATION
  Report Type: 
  Country: None (occurrence: None)
  Receive Date: 20110606
  Receipt Date: 20110523
  Transmission Date: 20111010
  Serious: Yes (Hospitalization)
  Sender: FDA-Public Use
  Company Number: US-BAYER-2010-006225

PATIENT
  Age: 16 Year
  Sex: Female
  Weight: 90.7 kg

DRUGS (7)
  1. ZYRTEC-D 12 HOUR [Concomitant]
     Dosage: 5/120 MG, 1 DAILY
  2. FERROUS SULFATE TAB [Concomitant]
     Dosage: 27 MG, QD
  3. YASMIN [Suspect]
     Indication: ACNE
     Dosage: UNK
     Route: 048
     Dates: start: 20050101, end: 20070101
  4. VITAMIN B12 NOS [Concomitant]
     Dosage: 1000 ?G, QD
  5. YASMIN [Suspect]
     Indication: CONTRACEPTION
  6. PRILOSEC [Concomitant]
     Dosage: 20 MG, QD
  7. SYNTHROID [Concomitant]
     Dosage: 133 ?G, QD

REACTIONS (6)
  - INJURY [None]
  - GALLBLADDER NON-FUNCTIONING [None]
  - CHOLECYSTITIS CHRONIC [None]
  - GALLBLADDER CHOLESTEROLOSIS [None]
  - GALLBLADDER DISORDER [None]
  - PAIN [None]
